FAERS Safety Report 7805964-1 (Version None)
Quarter: 2011Q4

REPORT INFORMATION
  Report Type: 
  Country: None (occurrence: None)
  Receive Date: 20111011
  Receipt Date: 20110929
  Transmission Date: 20120403
  Serious: Yes (Hospitalization)
  Sender: FDA-Public Use
  Company Number: US-ELI_LILLY_AND_COMPANY-US201109008419

PATIENT
  Sex: Male

DRUGS (7)
  1. DIGOXIN [Concomitant]
     Dosage: 0.125 MG, UNK
  2. METOPROLOL TARTRATE [Concomitant]
     Dosage: 25 MG, QID
  3. LANTUS [Concomitant]
     Dosage: UNK
  4. HUMALOG [Suspect]
     Indication: DIABETES MELLITUS
     Dosage: 4 U, UNK
     Dates: start: 20040101
  5. METOPROLOL TARTRATE [Concomitant]
     Indication: TACHYCARDIA
     Dosage: 25 MG, TID
  6. METOPROLOL TARTRATE [Concomitant]
     Route: 042
  7. HUMALOG [Suspect]
     Dosage: UNK, PRN
     Dates: start: 20040101

REACTIONS (3)
  - TACHYCARDIA [None]
  - CATARACT [None]
  - CORNEAL TRANSPLANT [None]
